FAERS Safety Report 5975090-5 (Version None)
Quarter: 2008Q4

REPORT INFORMATION
  Report Type: 
  Country: None (occurrence: None)
  Receive Date: 20081202
  Receipt Date: 20081117
  Transmission Date: 20090506
  Serious: Yes (Hospitalization)
  Sender: FDA-Public Use
  Company Number: JP-BRISTOL-MYERS SQUIBB COMPANY-14421341

PATIENT
  Age: 70 Year
  Sex: Male

DRUGS (2)
  1. ERBITUX [Suspect]
     Indication: COLON CANCER
     Route: 041
     Dates: start: 20081104
  2. IRINOTECAN HCL [Suspect]
     Indication: COLON CANCER
     Dosage: FORM = INJ
     Route: 041

REACTIONS (1)
  - HAEMOGLOBIN DECREASED [None]
